FAERS Safety Report 9586422 (Version 1)
Quarter: 2013Q4

REPORT INFORMATION
  Report Type: Spontaneous
  Country: US (occurrence: None)
  Receive Date: 20131001
  Receipt Date: 20131001
  Transmission Date: 20140711
  Serious: Yes (Hospitalization)
  Sender: FDA-Public Use
  Company Number: UTC-038361

PATIENT
  Age: 62 Year
  Sex: Female
  Weight: 104 kg

DRUGS (2)
  1. REMODULIN [Suspect]
     Indication: PULMONARY ARTERIAL HYPERTENSION
     Dosage: 8.64 UG/KG (0.006 UG/KG,1 IN 1 MIN),INTRAVENOUS DRIP
     Route: 041
     Dates: start: 20130914
  2. REVATIO (SILDENAFIL CITRATE) (UNKNOWN) (SILDENAFIL) [Concomitant]

REACTIONS (3)
  - Vomiting [None]
  - Headache [None]
  - Diarrhoea [None]
